FAERS Safety Report 7068396-2 (Version None)
Quarter: 2010Q4

REPORT INFORMATION
  Report Type: 
  Country: None (occurrence: None)
  Receive Date: 20101028
  Receipt Date: 20101018
  Transmission Date: 20110411
  Serious: Yes (Hospitalization)
  Sender: FDA-Public Use
  Company Number: B0666005A

PATIENT
  Age: 37 Year
  Sex: Male

DRUGS (3)
  1. VALACICLOVIR [Suspect]
     Dosage: 4.5G PER DAY
  2. MYCOPHENOLIC ACID [Suspect]
     Dosage: 2MG PER DAY
  3. TACROLIMUS [Concomitant]
     Dosage: 2G PER DAY

REACTIONS (5)
  - DYSPEPSIA [None]
  - FATIGUE [None]
  - NEUTROPENIA [None]
  - NEUTROPHIL COUNT DECREASED [None]
  - WHITE BLOOD CELL COUNT DECREASED [None]
